FAERS Safety Report 7660344-7 (Version None)
Quarter: 2011Q3

REPORT INFORMATION
  Report Type: 
  Country: None (occurrence: None)
  Receive Date: 20110805
  Receipt Date: 20110801
  Transmission Date: 20111222
  Serious: Yes (Hospitalization, Other)
  Sender: FDA-Public Use
  Company Number: JP-PFIZER INC-2011082822

PATIENT
  Age: 78 Year
  Sex: Female
  Weight: 60 kg

DRUGS (18)
  1. CELECOXIB [Suspect]
     Indication: SPINAL CORD INJURY
  2. SIGMART [Concomitant]
  3. FUROSEMIDE [Concomitant]
     Dosage: 40 MG, 1X/DAY
     Route: 048
     Dates: end: 20110416
  4. NERIPROCT [Concomitant]
     Indication: HAEMORRHOIDS
     Dosage: 2 G, 1X/DAY
     Route: 062
  5. LYRICA [Suspect]
     Indication: SPINAL COMPRESSION FRACTURE
  6. LYRICA [Suspect]
     Indication: SPINAL CORD INJURY
  7. TOYOFAROL [Concomitant]
     Dosage: 0.25 UG, 2X/DAY
     Route: 048
     Dates: end: 20110416
  8. MAGMITT [Concomitant]
     Dosage: 330 MG, 1X/DAY
     Route: 048
     Dates: end: 20110416
  9. PREDNISOLONE [Concomitant]
     Dosage: 2 MG, 2X/DAY
     Route: 048
     Dates: end: 20110420
  10. MUCOSTA [Concomitant]
     Dosage: 100 MG, 3X/DAY
     Route: 048
     Dates: end: 20110416
  11. NICORANDIS [Concomitant]
     Dosage: 5 MG, 3X/DAY
     Route: 048
     Dates: end: 20110420
  12. CELECOXIB [Suspect]
     Indication: SPINAL COMPRESSION FRACTURE
     Dosage: 200 MG, 2X/DAY
     Route: 048
     Dates: start: 20090319, end: 20110416
  13. PROGRAF [Suspect]
     Indication: RHEUMATOID VASCULITIS
     Dosage: 0.5 MG, 1X/DAY
     Route: 048
     Dates: start: 20110404, end: 20110420
  14. RABEPRAZOLE SODIUM [Suspect]
     Dosage: 20 MG, 1X/DAY
     Route: 048
     Dates: end: 20110416
  15. ARGAMATE [Concomitant]
     Dosage: 25 G, 3X/DAY
     Route: 048
     Dates: end: 20110416
  16. LYRICA [Suspect]
     Indication: BACK PAIN
     Dosage: 75 MG, 1X/DAY
     Route: 048
     Dates: start: 20110405, end: 20110416
  17. RIZE [Concomitant]
     Dosage: 5 MG, 2X/DAY
     Route: 048
     Dates: end: 20110416
  18. ALOSENN [Concomitant]
     Dosage: 1 G, 1X/DAY
     Route: 048
     Dates: end: 20110416

REACTIONS (12)
  - HYPERGLYCAEMIA [None]
  - OXYGEN SATURATION DECREASED [None]
  - RENAL FAILURE [None]
  - STOMATITIS [None]
  - PNEUMONIA [None]
  - DISSEMINATED INTRAVASCULAR COAGULATION [None]
  - COMA [None]
  - BLOOD PRESSURE DECREASED [None]
  - AGRANULOCYTOSIS [None]
  - SKIN ULCER [None]
  - SEPSIS [None]
  - PLATELET COUNT DECREASED [None]
